FAERS Safety Report 25939806 (Version 1)
Quarter: 2025Q4

REPORT INFORMATION
  Report Type: Report from Study
  Country: CA (occurrence: CA)
  Receive Date: 20251020
  Receipt Date: 20251020
  Transmission Date: 20260117
  Serious: Yes (Other)
  Sender: ABBVIE
  Company Number: CA-ABBVIE-6507321

PATIENT
  Age: 21 Year
  Sex: Female

DRUGS (1)
  1. SKYRIZI [Suspect]
     Active Substance: RISANKIZUMAB-RZAA
     Indication: Crohn^s disease
     Route: 058

REACTIONS (12)
  - Intestinal haemorrhage [Unknown]
  - Gastrointestinal oedema [Unknown]
  - Gastrointestinal mucosa hyperaemia [Unknown]
  - Gastrointestinal disorder [Unknown]
  - Intestinal ulcer [Unknown]
  - Intestinal vascular disorder [Unknown]
  - Defaecation urgency [Unknown]
  - Fall [Unknown]
  - Joint injury [Unknown]
  - Anxiety [Unknown]
  - Stress [Unknown]
  - Colitis [Unknown]

NARRATIVE: CASE EVENT DATE: 20250101
